FAERS Safety Report 11281797 (Version 1)
Quarter: 2015Q3

REPORT INFORMATION
  Report Type: Report from Study
  Country: CA (occurrence: CA)
  Receive Date: 20150717
  Receipt Date: 20150717
  Transmission Date: 20151125
  Serious: Yes (Hospitalization)
  Sender: FDA-Public Use
  Company Number: PHHY2015CA085746

PATIENT
  Age: 68 Year
  Sex: Male

DRUGS (3)
  1. CLOZARIL [Suspect]
     Active Substance: CLOZAPINE
     Indication: PRODUCT USED FOR UNKNOWN INDICATION
     Dosage: 425 MG, QD
     Route: 048
     Dates: start: 20080827
  2. CLOZARIL [Suspect]
     Active Substance: CLOZAPINE
     Dosage: 1275 MG
     Route: 048
     Dates: start: 20150713
  3. LAMICTAL [Concomitant]
     Active Substance: LAMOTRIGINE
     Indication: PRODUCT USED FOR UNKNOWN INDICATION
     Route: 065
     Dates: start: 20150713

REACTIONS (1)
  - Intentional overdose [Unknown]

NARRATIVE: CASE EVENT DATE: 20150713
